FAERS Safety Report 8985565 (Version 1)
Quarter: 2012Q4

REPORT INFORMATION
  Report Type: 
  Country: SE (occurrence: SE)
  Receive Date: 20121226
  Receipt Date: 20121226
  Transmission Date: 20130627
  Serious: Yes (Hospitalization, Other)
  Sender: FDA-Public Use
  Company Number: SE-PFIZER INC-2012320857

PATIENT
  Age: 66 Year
  Sex: Female

DRUGS (7)
  1. MINDIAB [Suspect]
     Indication: DIABETES MELLITUS
     Dosage: UNK
  2. METFORMIN HCL [Suspect]
     Indication: DIABETES MELLITUS
     Dosage: UNK
  3. ENALAPRIL [Suspect]
     Indication: BENIGN ESSENTIAL HYPERTENSION
     Dosage: UNK
  4. SIMVASTATIN [Concomitant]
     Dosage: UNK
  5. FENURIL [Concomitant]
     Dosage: UNK
  6. LOGIMAX [Concomitant]
     Dosage: UNK
  7. RHINOCORT AQUA [Concomitant]
     Dosage: UNK

REACTIONS (5)
  - Gastroenteritis [Unknown]
  - Lactic acidosis [Unknown]
  - Renal failure acute [Unknown]
  - Blood creatinine increased [Unknown]
  - Anaemia [Unknown]
